FAERS Safety Report 20001511 (Version 1)
Quarter: 2021Q4

REPORT INFORMATION
  Report Type: Spontaneous
  Country: US (occurrence: US)
  Receive Date: 20211027
  Receipt Date: 20211027
  Transmission Date: 20220303
  Serious: Yes (Hospitalization, Other)
  Sender: FDA-Public Use
  Company Number: US-BOEHRINGERINGELHEIM-2021-BI-134643

PATIENT
  Sex: Female

DRUGS (4)
  1. JARDIANCE [Suspect]
     Active Substance: EMPAGLIFLOZIN
     Indication: Product used for unknown indication
  2. HUMALOG [Suspect]
     Active Substance: INSULIN LISPRO
     Indication: Product used for unknown indication
     Dosage: 20 UNITS PER INJECTION.
  3. INSULIN GLARGINE [Suspect]
     Active Substance: INSULIN GLARGINE
     Indication: Product used for unknown indication
     Dosage: U80 KWIKPEN 100U/ML?65-70 UNITS OF BASAGLAR PER INJECTION
  4. BYETTA [Suspect]
     Active Substance: EXENATIDE
     Indication: Product used for unknown indication
     Dosage: 20 UNITS PER INJECTION.

REACTIONS (6)
  - Pancreatitis [Recovered/Resolved]
  - Blood glucose increased [Recovered/Resolved]
  - Glycosylated haemoglobin increased [Recovered/Resolved]
  - Tremor [Recovering/Resolving]
  - Dehydration [Recovering/Resolving]
  - Blood glucose decreased [Recovering/Resolving]
